FAERS Safety Report 16607108 (Version 1)
Quarter: 2019Q3

REPORT INFORMATION
  Report Type: Spontaneous
  Country: SE (occurrence: SE)
  Receive Date: 20190722
  Receipt Date: 20190722
  Transmission Date: 20191004
  Serious: Yes (Other)
  Sender: FDA-Public Use
  Company Number: SE-ALKEM LABORATORIES LIMITED-SE-ALKEM-2019-03610

PATIENT
  Age: 46 Year
  Sex: Male

DRUGS (8)
  1. TACROLIMUS. [Suspect]
     Active Substance: TACROLIMUS
     Dosage: 0.1% OINTMENT, TWICE A WEEK
     Route: 061
  2. TRIAMCINOLONE ACETONIDE. [Suspect]
     Active Substance: TRIAMCINOLONE ACETONIDE
     Indication: ORAL LICHEN PLANUS
     Dosage: 0.1% BID
     Route: 061
  3. FLUCONAZOLE. [Suspect]
     Active Substance: FLUCONAZOLE
     Indication: ORAL LICHEN PLANUS
     Dosage: 50 MILLIGRAM, OD
     Route: 065
  4. TACROLIMUS. [Suspect]
     Active Substance: TACROLIMUS
     Dosage: 0.1% OINTMENT, TWICE A WEEK
     Route: 061
  5. TACROLIMUS. [Suspect]
     Active Substance: TACROLIMUS
     Indication: ORAL LICHEN PLANUS
     Dosage: 0.1% OINTMENT, TWICE DAILY FOR 3 WEEKS
     Route: 061
  6. TACROLIMUS. [Suspect]
     Active Substance: TACROLIMUS
     Dosage: 0.1% OINTMENT, ONCE DAILY
     Route: 061
  7. CLOBETASOL PROPRIONATE [Suspect]
     Active Substance: CLOBETASOL PROPIONATE
     Indication: ORAL LICHEN PLANUS
     Dosage: 0.025%, BID, IN A TAPERED DOSE FOR 6 WEEKS
     Route: 061
  8. TACROLIMUS. [Suspect]
     Active Substance: TACROLIMUS
     Dosage: 0.1% OINTMENT, ONCE A WEEK
     Route: 061

REACTIONS (2)
  - Drug ineffective [Unknown]
  - Squamous cell carcinoma of the oral cavity [Unknown]
